FAERS Safety Report 6016458-0 (Version None)
Quarter: 2008Q4

REPORT INFORMATION
  Report Type: 
  Country: None (occurrence: None)
  Receive Date: 20081222
  Receipt Date: 20081217
  Transmission Date: 20090506
  Serious: Yes (Other)
  Sender: FDA-Public Use
  Company Number: TR-WYE-H07338008

PATIENT
  Sex: Male
  Weight: 80 kg

DRUGS (4)
  1. TAZOCIN [Suspect]
     Indication: PSEUDOMONAS INFECTION
     Route: 042
     Dates: start: 20081015, end: 20081031
  2. XANAX [Concomitant]
     Dosage: 2X 1/2
     Route: 048
  3. CIPRALEX [Concomitant]
     Dosage: 1X1
     Route: 048
  4. DICLOFENAC SODIUM [Concomitant]
     Indication: PAIN IN EXTREMITY
     Dosage: 2X 1
     Route: 030

REACTIONS (2)
  - HYPERAEMIA [None]
  - SYNCOPE [None]
